FAERS Safety Report 11511076 (Version 2)
Quarter: 2016Q1

REPORT INFORMATION
  Report Type: Report from Study
  Country: PL (occurrence: PL)
  Receive Date: 20150915
  Receipt Date: 20160205
  Transmission Date: 20160525
  Serious: Yes (Congenital Anomaly, Other)
  Sender: FDA-Public Use
  Company Number: PL-BAYER-2015-417384

PATIENT
  Sex: Male
  Weight: 2.97 kg

DRUGS (1)
  1. BETAFERON [Suspect]
     Active Substance: INTERFERON BETA-1B
     Route: 064

REACTIONS (5)
  - Foetal exposure during pregnancy [None]
  - Urinary tract infection fungal [None]
  - Premature baby [None]
  - Renal failure [None]
  - Asphyxia [None]
